FAERS Safety Report 15215694 (Version 1)
Quarter: 2018Q3

REPORT INFORMATION
  Report Type: Spontaneous
  Country: US (occurrence: US)
  Receive Date: 20180703
  Receipt Date: 20180703
  Transmission Date: 20181010
  Serious: No
  Sender: FDA-Public Use
  Company Number: None

PATIENT
  Age: 79 Year
  Sex: Female
  Weight: 95.71 kg

DRUGS (2)
  1. GAMUNEX?C [Suspect]
     Active Substance: HUMAN IMMUNOGLOBULIN G
     Indication: HYPOGAMMAGLOBULINAEMIA
     Route: 042
     Dates: start: 20180625, end: 20180625
  2. GAMUNEX?C [Suspect]
     Active Substance: HUMAN IMMUNOGLOBULIN G
     Indication: HYPOGAMMAGLOBULINAEMIA
     Route: 042
     Dates: start: 20180625, end: 20180625

REACTIONS (12)
  - Eructation [None]
  - Dry mouth [None]
  - Tremor [None]
  - Vomiting [None]
  - Pain in extremity [None]
  - Asthenia [None]
  - Fatigue [None]
  - Diarrhoea [None]
  - Headache [None]
  - Abdominal pain upper [None]
  - Myalgia [None]
  - Nausea [None]
